FAERS Safety Report 6984305-6 (Version None)
Quarter: 2010Q3

REPORT INFORMATION
  Report Type: 
  Country: None (occurrence: None)
  Receive Date: 20100915
  Receipt Date: 20100907
  Transmission Date: 20110219
  Serious: No
  Sender: FDA-Public Use
  Company Number: US-US-EMD SERONO, INC.-7009808

PATIENT
  Sex: Female
  Weight: 69 kg

DRUGS (3)
  1. REBIF [Suspect]
     Indication: MULTIPLE SCLEROSIS
     Route: 058
     Dates: start: 20100204, end: 20100511
  2. LEVOTHYROXINE [Concomitant]
     Indication: HYPOTHYROIDISM
     Dates: start: 20090408
  3. NEURONTIN [Concomitant]
     Indication: PAIN
     Dates: start: 20100127

REACTIONS (2)
  - AUTOIMMUNE HEPATITIS [None]
  - FATIGUE [None]
